FAERS Safety Report 5775025-4 (Version None)
Quarter: 2008Q2

REPORT INFORMATION
  Report Type: 
  Country: None (occurrence: None)
  Receive Date: 20080617
  Receipt Date: 20080617
  Transmission Date: 20081010
  Serious: Yes (Life-Threatening)
  Sender: FDA-Public Use
  Company Number: None

PATIENT
  Age: 85 Year
  Sex: Female
  Weight: 62.3 kg

DRUGS (12)
  1. HEPARIN [Suspect]
     Indication: PROPHYLAXIS
     Dosage: 500-600 UNITS/HR IV
     Route: 042
     Dates: start: 20080316, end: 20080317
  2. HEPARIN [Suspect]
     Indication: CORONARY ARTERY BYPASS
     Dosage: 16,000 UNITS IV
     Route: 042
     Dates: start: 20080318
  3. SIMVASTATIN [Concomitant]
  4. BISACODYL [Concomitant]
  5. MOM [Concomitant]
  6. FENTANYL [Concomitant]
  7. INSULIN [Concomitant]
  8. DOCUSATE [Concomitant]
  9. CEFEPIME [Concomitant]
  10. MGS04 [Concomitant]
  11. LANSOPRAZOLE [Concomitant]
  12. METRONIDAZOLE [Concomitant]

REACTIONS (3)
  - ECCHYMOSIS [None]
  - HEPARIN-INDUCED THROMBOCYTOPENIA [None]
  - PETECHIAE [None]
